FAERS Safety Report 9433745 (Version 1)
Quarter: 2013Q3

REPORT INFORMATION
  Report Type: Spontaneous
  Country: US (occurrence: None)
  Receive Date: 20130729
  Receipt Date: 20130729
  Transmission Date: 20140515
  Serious: Yes (Other)
  Sender: FDA-Public Use
  Company Number: FK201302773

PATIENT
  Age: 84 Year
  Sex: Male

DRUGS (7)
  1. FUROSEMIDE (MANUFACTURER UNKNOWN) (FUROSEMIDE) (FUROSEMIDE) [Suspect]
     Indication: CARDIAC FAILURE CONGESTIVE
     Route: 048
  2. SIMVASTATIN (SIMVASTATIN) [Concomitant]
  3. POTASSIUM CHLORIDE (POTASSIUM CHLORIDE) [Concomitant]
  4. CHLORTHALIDONE (CHLORTALIDONE) [Concomitant]
  5. RAMIPRIL (RAMIPRIL) [Concomitant]
  6. MULTIVITAMIN (VIGRAN) [Concomitant]
  7. TORSEMIDE [Concomitant]

REACTIONS (4)
  - Urinary tract infection [None]
  - Pyelonephritis [None]
  - Cardiac failure congestive [None]
  - Thrombocytopenia [None]
